FAERS Safety Report 17297656 (Version 1)
Quarter: 2020Q1

REPORT INFORMATION
  Report Type: Spontaneous
  Country: FR (occurrence: FR)
  Receive Date: 20200122
  Receipt Date: 20200122
  Transmission Date: 20200409
  Serious: Yes (Death)
  Sender: FDA-Public Use
  Company Number: FR-TEVA-2020-FR-1170714

PATIENT
  Age: 20 Year
  Sex: Male

DRUGS (3)
  1. NOZINAN [Suspect]
     Active Substance: LEVOMEPROMAZINE
     Route: 065
     Dates: end: 2018
  2. METHADONE AP-HP 40 MG, G?LULE [Suspect]
     Active Substance: METHADONE HYDROCHLORIDE
     Route: 065
     Dates: end: 2018
  3. OLANZAPINE. [Suspect]
     Active Substance: OLANZAPINE
     Route: 065
     Dates: end: 2018

REACTIONS (2)
  - Aspiration [Fatal]
  - Drug abuse [Fatal]
